FAERS Safety Report 4687017-7 (Version None)
Quarter: 2005Q2

REPORT INFORMATION
  Report Type: 
  Country: None (occurrence: None)
  Receive Date: 20050606
  Receipt Date: 20050525
  Transmission Date: 20051028
  Serious: Yes (Hospitalization)
  Sender: FDA-Public Use
  Company Number: 2005081964

PATIENT
  Age: 60 Year
  Sex: Female
  Weight: 60 kg

DRUGS (9)
  1. LINEZOLID TABLET (LINEZOLID) [Suspect]
     Indication: ENTEROCOCCAL INFECTION
     Dosage: 1200 MG (600 MG, BID INTERVAL:  EVERY DAY), ORAL
     Route: 048
     Dates: start: 20040729, end: 20040819
  2. LINEZOLID TABLET (LINEZOLID) [Suspect]
     Indication: LIVER ABSCESS
     Dosage: 1200 MG (600 MG, BID INTERVAL:  EVERY DAY), ORAL
     Route: 048
     Dates: start: 20040729, end: 20040819
  3. AMLODIPINE [Concomitant]
  4. MAGNESIUM GLYCEROPHOSPHATE (MAGNESIUM GLYCEROPHOSPHATE) [Concomitant]
  5. PROGRAF [Concomitant]
  6. FLUCONAZOLE [Concomitant]
  7. LANSOPRAZOLE [Concomitant]
  8. VALGANCICLOVIR (VALGANCICLOVIR) [Concomitant]
  9. URSODIOL [Concomitant]

REACTIONS (5)
  - DECREASED APPETITE [None]
  - LIVER ABSCESS [None]
  - NAUSEA [None]
  - PANCYTOPENIA [None]
  - SEPSIS [None]
